FAERS Safety Report 14784677 (Version 1)
Quarter: 2018Q2

REPORT INFORMATION
  Report Type: Spontaneous
  Country: US (occurrence: US)
  Receive Date: 20180420
  Receipt Date: 20180420
  Transmission Date: 20180711
  Serious: No
  Sender: FDA-Public Use
  Company Number: US-BEH-2018089804

PATIENT
  Age: 60 Year
  Sex: Male

DRUGS (3)
  1. HIZENTRA [Suspect]
     Active Substance: HUMAN IMMUNOGLOBULIN G
     Indication: CHRONIC SINUSITIS
  2. HIZENTRA [Suspect]
     Active Substance: HUMAN IMMUNOGLOBULIN G
     Indication: IMMUNODEFICIENCY
     Dosage: 10 G (50ML), QW
     Route: 058
     Dates: start: 20170209
  3. HIZENTRA [Suspect]
     Active Substance: HUMAN IMMUNOGLOBULIN G
     Indication: SELECTIVE IGA IMMUNODEFICIENCY

REACTIONS (2)
  - Infusion site haemorrhage [Unknown]
  - Infusion site bruising [Unknown]

NARRATIVE: CASE EVENT DATE: 20180403
